FAERS Safety Report 12395119 (Version 15)
Quarter: 2020Q1

REPORT INFORMATION
  Report Type: Spontaneous
  Country: US (occurrence: US)
  Receive Date: 20160523
  Receipt Date: 20200131
  Transmission Date: 20200409
  Serious: Yes (Death, Hospitalization, Other)
  Sender: FDA-Public Use
  Company Number: US-ACTELION-A-US2015-119888

PATIENT
  Age: 49 Year
  Sex: Male
  Weight: 54.42 kg

DRUGS (5)
  1. VELETRI [Suspect]
     Active Substance: EPOPROSTENOL
     Dosage: UNK
     Route: 042
  2. OPSUMIT [Suspect]
     Active Substance: MACITENTAN
     Indication: PULMONARY ARTERIAL HYPERTENSION
     Dosage: 10 MG, QD
     Route: 048
  3. COUMADIN [Concomitant]
     Active Substance: WARFARIN SODIUM
  4. VELETRI [Suspect]
     Active Substance: EPOPROSTENOL
     Indication: PULMONARY ARTERIAL HYPERTENSION
     Dosage: 107 NG/KG, PER MIN
     Route: 042
     Dates: start: 20150217
  5. REVATIO [Concomitant]
     Active Substance: SILDENAFIL CITRATE

REACTIONS (14)
  - Death [Fatal]
  - Fluid retention [Unknown]
  - Bronchitis [Unknown]
  - Atrial fibrillation [Unknown]
  - Hospitalisation [Unknown]
  - Sinusitis [Unknown]
  - Gallbladder disorder [Unknown]
  - Pain in jaw [Unknown]
  - Pulmonary embolism [Unknown]
  - Dyspnoea exertional [Not Recovered/Not Resolved]
  - Cholecystectomy [Unknown]
  - Upper respiratory tract infection [Unknown]
  - Catheter site infection [Unknown]
  - Diarrhoea [Unknown]

NARRATIVE: CASE EVENT DATE: 20171004
